FAERS Safety Report 22005209 (Version 1)
Quarter: 2023Q1

REPORT INFORMATION
  Report Type: Other
  Country: IR (occurrence: None)
  Receive Date: 20230217
  Receipt Date: 20230217
  Transmission Date: 20230417
  Serious: Yes (Death, Hospitalization)
  Sender: FDA-Public Use
  Company Number: IR-ROCHE-3219279

PATIENT
  Age: 20 Year
  Sex: Male

DRUGS (4)
  1. SOMATROPIN [Suspect]
     Active Substance: SOMATROPIN
     Indication: Medical anabolic therapy
     Dosage: 30 INJECTIONS, EACH CONTAINING 10 MG/1.5 ML
     Route: 058
  2. CEFTRIAXONE [Concomitant]
     Active Substance: CEFTRIAXONE
  3. CLINDAMYCIN [Concomitant]
     Active Substance: CLINDAMYCIN
  4. MIDAZOLAM [Concomitant]
     Active Substance: MIDAZOLAM

REACTIONS (12)
  - Overdose [Fatal]
  - Drug abuse [Unknown]
  - Rhabdomyolysis [Unknown]
  - Pleural effusion [Unknown]
  - Hypertensive crisis [Unknown]
  - Cardio-respiratory arrest [Unknown]
  - Pulmonary embolism [Unknown]
  - Muscle hypertrophy [Unknown]
  - Muscle injury [Unknown]
  - Ventricular hypertrophy [Unknown]
  - Acromegaly [Unknown]
  - Cardiomyopathy [Unknown]
